FAERS Safety Report 5995758-4 (Version None)
Quarter: 2008Q4

REPORT INFORMATION
  Report Type: 
  Country: None (occurrence: None)
  Receive Date: 20081212
  Receipt Date: 20081203
  Transmission Date: 20090506
  Serious: Yes (Hospitalization, Other)
  Sender: FDA-Public Use
  Company Number: US-AMGEN-QUU318114

PATIENT
  Sex: Male
  Weight: 88.1 kg

DRUGS (6)
  1. ENBREL [Suspect]
     Indication: PSORIASIS
     Dates: start: 20040101, end: 20080101
  2. CARDURA [Concomitant]
  3. FLOMAX [Concomitant]
  4. AMBIEN [Concomitant]
     Route: 048
  5. LOMOTIL [Concomitant]
     Route: 048
  6. PROTONIX [Concomitant]
     Dates: start: 20080701

REACTIONS (17)
  - CHILLS [None]
  - DECREASED APPETITE [None]
  - DIARRHOEA [None]
  - FATIGUE [None]
  - GUILLAIN-BARRE SYNDROME [None]
  - HEADACHE [None]
  - HEPATIC ENZYME INCREASED [None]
  - LEUKOCYTOSIS [None]
  - LYME DISEASE [None]
  - LYMPHOCYTOSIS [None]
  - MYALGIA [None]
  - NIGHT SWEATS [None]
  - OEDEMA [None]
  - PALMAR-PLANTAR ERYTHRODYSAESTHESIA SYNDROME [None]
  - PSORIASIS [None]
  - PYREXIA [None]
  - SPLENOMEGALY [None]
